FAERS Safety Report 9925208 (Version 3)
Quarter: 2014Q2

REPORT INFORMATION
  Report Type: Spontaneous
  Country: FR (occurrence: FR)
  Receive Date: 20140226
  Receipt Date: 20140512
  Transmission Date: 20141212
  Serious: Yes (Hospitalization)
  Sender: FDA-Public Use
  Company Number: FR-PFIZER INC-2014048718

PATIENT
  Age: 65 Year
  Sex: Male

DRUGS (11)
  1. TAHOR [Suspect]
     Indication: HYPERCHOLESTEROLAEMIA
     Dosage: UNK
     Route: 048
  2. LYRICA [Suspect]
     Dosage: UNK
     Route: 048
  3. EUPANTOL [Suspect]
     Indication: PROPHYLAXIS
     Dosage: UNK
     Route: 048
  4. KARDEGIC [Suspect]
     Indication: CEREBROVASCULAR ACCIDENT
     Dosage: UNK
     Route: 048
  5. PROCORALAN [Suspect]
     Dosage: UNK
     Route: 048
  6. OXAZEPAM [Suspect]
     Indication: ANXIETY
     Dosage: UNK
     Route: 048
  7. SPREGAL [Suspect]
     Indication: ACARODERMATITIS
     Dosage: UNK, 2X/WEEK
     Route: 003
     Dates: start: 201311
  8. STROMECTOL [Suspect]
     Indication: ACARODERMATITIS
     Dosage: UNK, 2X/WEEK
     Route: 003
     Dates: start: 201311
  9. SYMBICORT [Concomitant]
     Dosage: UNK
  10. SPIRIVA [Concomitant]
     Dosage: UNK
  11. PARACETAMOL [Concomitant]
     Indication: PAIN
     Dosage: UNK

REACTIONS (1)
  - Eczema [Recovering/Resolving]
